FAERS Safety Report 23281730 (Version 1)
Quarter: 2023Q4

REPORT INFORMATION
  Report Type: Other
  Country: IR (occurrence: IR)
  Receive Date: 20231211
  Receipt Date: 20231211
  Transmission Date: 20240110
  Serious: Yes (Other)
  Sender: FDA-Public Use
  Company Number: IR-BoehringerIngelheim-2023-BI-276438

PATIENT
  Age: 61 Year
  Sex: Male

DRUGS (1)
  1. ALTEPLASE [Suspect]
     Active Substance: ALTEPLASE
     Indication: Ischaemic stroke
     Route: 042

REACTIONS (4)
  - Bullous haemorrhagic dermatosis [Unknown]
  - Injection site necrosis [Unknown]
  - Injection site ulcer [Unknown]
  - Administration site extravasation [Unknown]
